FAERS Safety Report 10595147 (Version 1)
Quarter: 2014Q4

REPORT INFORMATION
  Report Type: Spontaneous
  Country: FR (occurrence: FR)
  Receive Date: 20141120
  Receipt Date: 20141120
  Transmission Date: 20150529
  Serious: Yes (Hospitalization)
  Sender: FDA-Public Use
  Company Number: FR-UCBSA-2014018762

PATIENT
  Age: 55 Year
  Sex: Male

DRUGS (7)
  1. AUGMENTIN [Suspect]
     Active Substance: AMOXICILLIN\CLAVULANATE POTASSIUM
     Indication: BRONCHIAL OBSTRUCTION
     Dosage: 1 G, 3X/DAY (TID)
     Route: 042
     Dates: start: 20140915, end: 20140922
  2. SERESTA [Suspect]
     Active Substance: OXAZEPAM
     Indication: PRODUCT USED FOR UNKNOWN INDICATION
     Dosage: 50 MG, 3X/DAY (TID)
     Route: 048
     Dates: start: 20140912
  3. SEROPLEX [Suspect]
     Active Substance: ESCITALOPRAM OXALATE
     Indication: PRODUCT USED FOR UNKNOWN INDICATION
     Dosage: 20 G, ONCE DAILY (QD)
     Route: 048
     Dates: start: 20140924
  4. NICOBION [Suspect]
     Active Substance: NIACINAMIDE
     Indication: PRODUCT USED FOR UNKNOWN INDICATION
     Dosage: 1 DF, 2X/DAY (BID)
     Route: 048
     Dates: start: 20140912
  5. PARACETAMOL [Suspect]
     Active Substance: ACETAMINOPHEN
     Indication: PYREXIA
     Dosage: UNK
     Route: 042
     Dates: start: 20140912, end: 20140930
  6. TRANXENE T-TAB [Suspect]
     Active Substance: CLORAZEPATE DIPOTASSIUM
     Indication: ALCOHOLISM
     Dosage: UNK
     Route: 042
     Dates: start: 20140912, end: 20140921
  7. KEPPRA [Suspect]
     Active Substance: LEVETIRACETAM
     Indication: EPILEPSY
     Dosage: 500 MG, 2X/DAY (BID)
     Route: 042
     Dates: start: 20140912, end: 20140924

REACTIONS (5)
  - Cholestasis [Recovering/Resolving]
  - Jaundice [Recovering/Resolving]
  - Pyrexia [Recovered/Resolved]
  - C-reactive protein increased [Recovering/Resolving]
  - Hepatocellular injury [Unknown]

NARRATIVE: CASE EVENT DATE: 20140912
